FAERS Safety Report 16444327 (Version 1)
Quarter: 2019Q2

REPORT INFORMATION
  Report Type: Report from Study
  Country: IT (occurrence: IT)
  Receive Date: 20190618
  Receipt Date: 20190618
  Transmission Date: 20190711
  Serious: Yes (Other)
  Sender: FDA-Public Use
  Company Number: IT-ROCHE-2337342

PATIENT
  Age: 68 Year
  Sex: Female
  Weight: 52 kg

DRUGS (9)
  1. DIBASE [Concomitant]
     Active Substance: CHOLECALCIFEROL
     Route: 065
     Dates: start: 2007
  2. CETIRIZINA [CETIRIZINE] [Concomitant]
     Indication: PRURITUS
     Route: 065
     Dates: start: 20181011
  3. ZINC OXIDE. [Concomitant]
     Active Substance: ZINC OXIDE
     Indication: RASH
     Route: 065
     Dates: start: 20181023
  4. FUCIMIXBETA [Concomitant]
     Indication: RASH
     Route: 065
     Dates: start: 20181023
  5. COBIMETINIB. [Suspect]
     Active Substance: COBIMETINIB
     Indication: MALIGNANT MELANOMA
     Dosage: ON 15/APR/2019, SHE RECEIVED THE MOST RECENT DOSE (40 MG) OF COBIMETINIB PRIOR TO AE (ADVERSE EVENT)
     Route: 048
     Dates: start: 20180928
  6. LEXOTAN [Concomitant]
     Active Substance: BROMAZEPAM
     Indication: ANXIETY
     Route: 065
     Dates: start: 2015
  7. DOXYCYCLINE. [Concomitant]
     Active Substance: DOXYCYCLINE
     Indication: RASH
     Route: 065
     Dates: start: 20181011
  8. ATORVASTATINA [ATORVASTATIN] [Concomitant]
     Active Substance: ATORVASTATIN
     Route: 065
     Dates: start: 2016
  9. ATEZOLIZUMAB. [Suspect]
     Active Substance: ATEZOLIZUMAB
     Indication: MALIGNANT MELANOMA
     Dosage: ON 09/APR/2019, SHE RECEIVED THE MOST RECENT DOSE (840 MG) OF ATEZOLIZUMAB PRIOR TO AE (ADVERSE EVEN
     Route: 042
     Dates: start: 20180928

REACTIONS (1)
  - Myasthenia gravis [Not Recovered/Not Resolved]

NARRATIVE: CASE EVENT DATE: 20190423
